FAERS Safety Report 7443252-6 (Version None)
Quarter: 2011Q2

REPORT INFORMATION
  Report Type: 
  Country: None (occurrence: None)
  Receive Date: 20110428
  Receipt Date: 20110422
  Transmission Date: 20111010
  Serious: Yes (Hospitalization)
  Sender: FDA-Public Use
  Company Number: B0715579A

PATIENT

DRUGS (2)
  1. LAMICTAL [Suspect]
     Route: 048
  2. DEPAKENE [Concomitant]
     Route: 048

REACTIONS (1)
  - SKIN DISORDER [None]
